FAERS Safety Report 5891796-0 (Version None)
Quarter: 2008Q3

REPORT INFORMATION
  Report Type: 
  Country: None (occurrence: None)
  Receive Date: 20080922
  Receipt Date: 20080909
  Transmission Date: 20090109
  Serious: Yes (Death)
  Sender: FDA-Public Use
  Company Number: US-ELI_LILLY_AND_COMPANY-US200809002171

PATIENT
  Age: 20 Year
  Sex: Female

DRUGS (2)
  1. ZYPREXA [Suspect]
     Indication: ABNORMAL BEHAVIOUR
  2. LITHIUM CARBONATE [Concomitant]

REACTIONS (1)
  - DRUG TOXICITY [None]
